FAERS Safety Report 16339378 (Version 1)
Quarter: 2019Q2

REPORT INFORMATION
  Report Type: Spontaneous
  Country: US (occurrence: US)
  Receive Date: 20190521
  Receipt Date: 20190521
  Transmission Date: 20190711
  Serious: No
  Sender: FDA-Public Use
  Company Number: US-SA-2019SA135036

PATIENT
  Age: 17 Year
  Sex: Male

DRUGS (1)
  1. ALLEGRA ALLERGY [Suspect]
     Active Substance: FEXOFENADINE HYDROCHLORIDE
     Dosage: TOOK 2 OF THE 180MG ALLEGRA ALLERGY 24 HR PILLS THIS MORNING
     Route: 065

REACTIONS (2)
  - Headache [Unknown]
  - Accidental exposure to product [Unknown]
